FAERS Safety Report 5052523-2 (Version None)
Quarter: 2006Q3

REPORT INFORMATION
  Report Type: 
  Country: None (occurrence: None)
  Receive Date: 20060717
  Receipt Date: 20060704
  Transmission Date: 20061208
  Serious: Yes (Death)
  Sender: FDA-Public Use
  Company Number: PHBS2006JP10017

PATIENT
  Age: 16 Year
  Sex: Male

DRUGS (1)
  1. SANDIMMUNE [Suspect]
     Indication: COLITIS ULCERATIVE
     Dosage: 180 MG/D
     Route: 042
     Dates: start: 20060630, end: 20060701

REACTIONS (6)
  - CARDIO-RESPIRATORY ARREST [None]
  - CHEST PAIN [None]
  - LIFE SUPPORT [None]
  - PULMONARY INFARCTION [None]
  - RESPIRATORY FAILURE [None]
  - SEPSIS [None]
